FAERS Safety Report 6542410-2 (Version None)
Quarter: 2010Q1

REPORT INFORMATION
  Report Type: 
  Country: None (occurrence: None)
  Receive Date: 20100114
  Receipt Date: 20100114
  Transmission Date: 20100710
  Serious: Yes (Hospitalization)
  Sender: FDA-Public Use
  Company Number: None

PATIENT
  Age: 61 Year
  Sex: Female
  Weight: 50.3493 kg

DRUGS (1)
  1. TUBERSOL [Suspect]

REACTIONS (5)
  - CHEST DISCOMFORT [None]
  - DRUG HYPERSENSITIVITY [None]
  - MUSCULAR WEAKNESS [None]
  - PARAESTHESIA ORAL [None]
  - THROAT TIGHTNESS [None]
